FAERS Safety Report 24603582 (Version 1)
Quarter: 2024Q4

REPORT INFORMATION
  Report Type: Spontaneous
  Country: US (occurrence: None)
  Receive Date: 20241111
  Receipt Date: 20241111
  Transmission Date: 20250115
  Serious: Yes (Hospitalization)
  Sender: Public
  Company Number: None

PATIENT
  Sex: Male

DRUGS (4)
  1. CYCLOSPORINE [Suspect]
     Active Substance: CYCLOSPORINE
     Indication: Liver transplant
     Dosage: FREQ: TAKE 1 CAPSULE BY MOUTH EVERY MORNING AND 1 CAPSULE AT NIGHT FOR LIVER TRANSPLANT
     Dates: start: 20240208
  2. CYCLOSPORINE [Concomitant]
     Active Substance: CYCLOSPORINE
  3. ELIQUIS [Concomitant]
     Active Substance: APIXABAN
  4. MYCOPHENOLATE MOFETIL [Concomitant]

REACTIONS (5)
  - Fall [None]
  - Skull fracture [None]
  - Oxygen saturation abnormal [None]
  - Vertebral artery stenosis [None]
  - Subarachnoid haemorrhage [None]
